FAERS Safety Report 6080846-7 (Version None)
Quarter: 2009Q1

REPORT INFORMATION
  Report Type: 
  Country: None (occurrence: None)
  Receive Date: 20090217
  Receipt Date: 20090204
  Transmission Date: 20090719
  Serious: Yes (Hospitalization)
  Sender: FDA-Public Use
  Company Number: FR-GENENTECH-277204

PATIENT
  Sex: Female
  Weight: 65 kg

DRUGS (3)
  1. HERCEPTIN [Suspect]
     Indication: BREAST CANCER METASTATIC
     Dosage: 120 MG, 1/WEEK
     Route: 042
  2. HERCEPTIN [Suspect]
     Dosage: 570 MG, UNK
     Dates: start: 20081218, end: 20081218
  3. TAXOL [Concomitant]
     Indication: BREAST CANCER
     Dosage: UNK

REACTIONS (2)
  - OVERDOSE [None]
  - TACHYCARDIA [None]
